FAERS Safety Report 10229373 (Version 1)
Quarter: 2014Q2

REPORT INFORMATION
  Report Type: Spontaneous
  Country: IE (occurrence: FR)
  Receive Date: 20140611
  Receipt Date: 20140611
  Transmission Date: 20141212
  Serious: Yes (Hospitalization)
  Sender: FDA-Public Use
  Company Number: 2014SP003180

PATIENT
  Age: 87 Year
  Sex: Male

DRUGS (28)
  1. ETOMIDATE [Suspect]
     Indication: ANAESTHESIA
     Route: 042
     Dates: start: 20121003, end: 20121003
  2. SUFENTANIL [Suspect]
     Indication: ANAESTHESIA
     Route: 042
     Dates: start: 20121003, end: 20121003
  3. PROTAMINE SULPHATE [Suspect]
     Indication: PRODUCT USED FOR UNKNOWN INDICATION
     Route: 042
     Dates: start: 20121003, end: 20121003
  4. TRANEXAMIC ACID [Suspect]
     Indication: HAEMORRHAGE PROPHYLAXIS
     Route: 042
     Dates: start: 20121003, end: 20121003
  5. AVODART [Concomitant]
     Dates: end: 20121001
  6. CRESTOR [Concomitant]
     Indication: DYSLIPIDAEMIA
  7. ESOMEPRAZOLE [Concomitant]
     Indication: GASTRODUODENAL ULCER
     Dates: start: 20121003
  8. STILNOX [Concomitant]
     Indication: INSOMNIA
  9. CORDARONE [Concomitant]
  10. LERCANIDIPINE HYDROCHLORIDE [Concomitant]
  11. CLINDAMYCIN PHOSPHATE [Concomitant]
     Dates: end: 20121001
  12. CLINDAMYCIN HYDROCHLORIDE [Concomitant]
     Dates: end: 20121001
  13. CLINDAMYCIN PALMITATE HYDROCHLORIDE [Concomitant]
     Dates: end: 20121001
  14. FLUINDIONE [Concomitant]
     Dates: end: 20120925
  15. OMEPRAZOLE [Concomitant]
     Dates: start: 20121003, end: 20121003
  16. EPHEDRINE RENAUDIN [Concomitant]
     Dates: start: 20121003
  17. NORADRENALINE /00127501/ [Concomitant]
     Dates: start: 20121003
  18. HEMOSTATIC [Concomitant]
  19. VANCOMYCIN [Suspect]
     Indication: PRODUCT USED FOR UNKNOWN INDICATION
     Route: 042
     Dates: start: 20121003, end: 20121003
  20. CISATRACURIUM BESILATE [Suspect]
     Indication: ANAESTHESIA
     Route: 042
     Dates: start: 20121003, end: 20121003
  21. HEPARIN SODIUM [Suspect]
     Indication: EXTRACORPOREAL CIRCULATION
     Route: 042
     Dates: start: 20121003
  22. HEPARIN SODIUM [Suspect]
     Indication: EXTRACORPOREAL CIRCULATION
     Route: 040
     Dates: start: 20121003
  23. HYDROXYZINE HYDROCHLORIDE [Suspect]
     Indication: ANXIETY
     Route: 048
     Dates: start: 20121002, end: 20121003
  24. ACETYLSALICYLATE LYSINE [Suspect]
     Indication: CARDIOVASCULAR EVENT PROPHYLAXIS
     Route: 048
  25. ACETYLSALICYLATE LYSINE [Suspect]
     Indication: CARDIOVASCULAR EVENT PROPHYLAXIS
  26. GINKGO BILOBA EXTRACT [Suspect]
     Indication: COGNITIVE DISORDER
     Route: 048
     Dates: end: 20121003
  27. PROPOFOL [Suspect]
     Indication: ANAESTHESIA
     Route: 042
     Dates: start: 20121003, end: 20121003
  28. KETAMINE [Suspect]
     Indication: ANAESTHESIA
     Route: 042
     Dates: start: 20121003, end: 20121003

REACTIONS (2)
  - Post procedural haemorrhage [Recovered/Resolved]
  - Haemorrhage [Recovered/Resolved]
